FAERS Safety Report 13241518 (Version 1)
Quarter: 2017Q1

REPORT INFORMATION
  Report Type: Report from Study
  Country: JP (occurrence: JP)
  Receive Date: 20170216
  Receipt Date: 20170216
  Transmission Date: 20170428
  Serious: Yes (Hospitalization, Other)
  Sender: FDA-Public Use
  Company Number: JP-TEVA-664731ISR

PATIENT
  Age: 29 Year
  Sex: Female
  Weight: 50 kg

DRUGS (13)
  1. SENNOSIDE [Concomitant]
     Active Substance: SENNOSIDES
     Dosage: ONGOING
     Route: 065
  2. LOXOPROFEN SODIUM [Concomitant]
     Active Substance: LOXOPROFEN SODIUM
     Dosage: ONGOING
     Dates: start: 20160507
  3. NEXIUM [Concomitant]
     Active Substance: ESOMEPRAZOLE MAGNESIUM
     Dates: start: 20160903, end: 20161115
  4. CLOTIAZEPAM [Concomitant]
     Active Substance: CLOTIAZEPAM
     Dates: start: 20161019
  5. PREDONINE [Concomitant]
     Active Substance: PREDNISOLONE
     Dates: start: 20160325, end: 20160405
  6. REBAMIPIDE [Concomitant]
     Active Substance: REBAMIPIDE
     Route: 065
     Dates: start: 20160828, end: 20160830
  7. ALOSENN [Concomitant]
     Active Substance: SENNA LEAF
     Dosage: ONGOING
  8. RABEPRAZOLE SODIUM. [Concomitant]
     Active Substance: RABEPRAZOLE SODIUM
     Dates: end: 20160405
  9. SODIUM PICOSULFATE [Concomitant]
     Active Substance: SODIUM PICOSULFATE
     Route: 065
     Dates: start: 20160506
  10. INDOMETACIN [Concomitant]
     Active Substance: INDOMETHACIN
     Dosage: TAPE (INCLUDING POULTICE) ONGOING
     Dates: start: 20160507
  11. SOL-MELCORT [Concomitant]
     Active Substance: METHYLPREDNISOLONE SODIUM SUCCINATE
     Dates: start: 20160502, end: 20160504
  12. GLATIRAMER ACETATE INJECTION, 20 MG [Suspect]
     Active Substance: GLATIRAMER ACETATE
     Indication: RELAPSING-REMITTING MULTIPLE SCLEROSIS
     Dosage: 20 MILLIGRAM DAILY;
     Route: 058
     Dates: start: 20160325, end: 20160526
  13. GLATIRAMER ACETATE INJECTION, 20 MG [Suspect]
     Active Substance: GLATIRAMER ACETATE
     Dosage: 20 MILLIGRAM DAILY;
     Route: 058
     Dates: start: 20160615, end: 20161129

REACTIONS (6)
  - Premature rupture of membranes [Unknown]
  - Constipation [Recovered/Resolved]
  - Hypoaesthesia [Recovered/Resolved]
  - Exposure during pregnancy [Unknown]
  - Threatened labour [Unknown]
  - Multiple sclerosis relapse [Recovering/Resolving]

NARRATIVE: CASE EVENT DATE: 2016
